FAERS Safety Report 14108130 (Version 1)
Quarter: 2017Q4

REPORT INFORMATION
  Report Type: Spontaneous
  Country: US (occurrence: US)
  Receive Date: 20171019
  Receipt Date: 20171019
  Transmission Date: 20180321
  Serious: Yes (Hospitalization, Other)
  Sender: FDA-Public Use
  Company Number: US-UPSHER-SMITH LABORATORIES, INC.-2017USL00255

PATIENT
  Sex: Male

DRUGS (1)
  1. AMIODARONE HYDROCHLORIDE. [Suspect]
     Active Substance: AMIODARONE HYDROCHLORIDE
     Indication: ATRIAL FIBRILLATION
     Dosage: UNK
     Route: 048
     Dates: start: 201303, end: 201610

REACTIONS (12)
  - Dyspnoea [Unknown]
  - Cough [Unknown]
  - Fatigue [Unknown]
  - Cellulitis [Unknown]
  - Hypertension [Unknown]
  - Pulmonary fibrosis [Unknown]
  - Hepatic cirrhosis [Unknown]
  - Heart rate increased [Unknown]
  - Atrial fibrillation [Unknown]
  - Oral disorder [Unknown]
  - Abdominal distension [Unknown]
  - Off label use [Recovered/Resolved]

NARRATIVE: CASE EVENT DATE: 201303
